FAERS Safety Report 20140338 (Version 1)
Quarter: 2021Q4

REPORT INFORMATION
  Report Type: Spontaneous
  Country: FR (occurrence: FR)
  Receive Date: 20211202
  Receipt Date: 20211202
  Transmission Date: 20220303
  Serious: Yes (Life-Threatening, Hospitalization, Other)
  Sender: FDA-Public Use
  Company Number: None

PATIENT
  Age: 53 Year
  Sex: Male

DRUGS (5)
  1. TRAMADOL HYDROCHLORIDE [Suspect]
     Active Substance: TRAMADOL HYDROCHLORIDE
     Dosage: 30 CP TAKEN IN ONE EVENING
     Route: 048
     Dates: start: 20210624, end: 20210624
  2. PAROXETINE HYDROCHLORIDE [Suspect]
     Active Substance: PAROXETINE HYDROCHLORIDE
     Dosage: 30 CP TAKEN IN ONE EVENING,UNIT DOSE:25MILLIGRAM
     Route: 048
     Dates: start: 20210624, end: 20210624
  3. PAROXETINE HYDROCHLORIDE [Suspect]
     Active Substance: PAROXETINE HYDROCHLORIDE
     Dosage: 25 MG 2CP IN THE MORNING,UNIT DOSE:50MILLIGRAM,THERAPY START DATE:ASKU,THERAPY END DATE:NOT ASKED
     Route: 048
  4. COCAINE [Suspect]
     Active Substance: COCAINE
     Dosage: THERAPY START DATE:ASKU,THERAPY END DATE :NOT ASKED
     Route: 065
  5. QUETIAPINE [Concomitant]
     Active Substance: QUETIAPINE
     Dosage: 300MILLIGRAM,THERAPY START DATE :ASKU,THERAPY END DATE:NOT ASKED
     Route: 048

REACTIONS (4)
  - Suicide attempt [Recovered/Resolved]
  - Loss of consciousness [Recovered/Resolved]
  - Drug abuse [Recovering/Resolving]
  - Amnesia [Recovered/Resolved]

NARRATIVE: CASE EVENT DATE: 20210624
